FAERS Safety Report 21393859 (Version 1)
Quarter: 2022Q3

REPORT INFORMATION
  Report Type: Spontaneous
  Country: JP (occurrence: JP)
  Receive Date: 20220930
  Receipt Date: 20220930
  Transmission Date: 20221027
  Serious: Yes (Other)
  Sender: FDA-Public Use
  Company Number: JP-MSD-M2022-34660

PATIENT
  Age: 57 Year
  Sex: Female

DRUGS (3)
  1. LAGEVRIO [Suspect]
     Active Substance: MOLNUPIRAVIR
     Indication: COVID-19 treatment
     Dosage: 800 MILLIGRAM, BID
     Route: 048
     Dates: start: 20220815, end: 20220817
  2. CALONAL [Concomitant]
     Active Substance: ACETAMINOPHEN
     Dosage: 1 DOSAGE FORM, BID
     Route: 048
     Dates: start: 20220815, end: 20220817
  3. KAKKONTOKASENKYUSHIN^I [CINNAMOMUM CASSIA BARK;CNIDIUM OFFICINALE RHIZ [Concomitant]
     Dosage: 1 DOSAGE FORM, BID
     Route: 065
     Dates: start: 20220815, end: 20220817

REACTIONS (1)
  - Urticaria [Recovered/Resolved]

NARRATIVE: CASE EVENT DATE: 20220817
